FAERS Safety Report 5274456-9 (Version None)
Quarter: 2007Q1

REPORT INFORMATION
  Report Type: 
  Country: None (occurrence: None)
  Receive Date: 20070323
  Receipt Date: 20070312
  Transmission Date: 20070707
  Serious: Yes (Other)
  Sender: FDA-Public Use
  Company Number: US-PFIZER INC-2007019304

PATIENT
  Age: 51 Year
  Sex: Male
  Weight: 108.9 kg

DRUGS (5)
  1. CHANTIX [Suspect]
     Indication: EX-SMOKER
     Dates: start: 20070302, end: 20070310
  2. AMITRIPTYLINE HCL [Concomitant]
  3. PRILOSEC [Concomitant]
  4. BENICAR [Concomitant]
  5. LIPITOR [Concomitant]

REACTIONS (5)
  - ANOREXIA [None]
  - INSOMNIA [None]
  - NERVOUSNESS [None]
  - PARAESTHESIA [None]
  - WEIGHT DECREASED [None]
